FAERS Safety Report 18923403 (Version 1)
Quarter: 2021Q1

REPORT INFORMATION
  Report Type: Spontaneous
  Country: NL (occurrence: NL)
  Receive Date: 20210222
  Receipt Date: 20210222
  Transmission Date: 20210420
  Serious: Yes (Death, Other)
  Sender: FDA-Public Use
  Company Number: NL-PERRIGO-21NL001899

PATIENT
  Age: 90 Year
  Sex: Female
  Weight: 56 kg

DRUGS (4)
  1. PARACETAMOL [Suspect]
     Active Substance: ACETAMINOPHEN
     Indication: ILEUS
     Dosage: 4X DAAGS 1000MG
     Route: 065
     Dates: start: 20210125
  2. MORFINE [Suspect]
     Active Substance: MORPHINE
     Indication: ILEUS
     Dosage: INJECTIEVLOEISTOF, 10 MG/ML (MILLIGRAM PER MILLILITER),
     Route: 065
     Dates: start: 20210125
  3. MORFINE [Suspect]
     Active Substance: MORPHINE
     Indication: PNEUMONIA
  4. MIDAZOLAM. [Suspect]
     Active Substance: MIDAZOLAM
     Indication: PALLIATIVE CARE
     Dosage: 6XDAAGS 10MG
     Route: 065
     Dates: start: 20210127

REACTIONS (1)
  - Death [Fatal]

NARRATIVE: CASE EVENT DATE: 20210202
